FAERS Safety Report 4657499-5 (Version None)
Quarter: 2005Q2

REPORT INFORMATION
  Report Type: 
  Country: None (occurrence: None)
  Receive Date: 20050510
  Receipt Date: 20050427
  Transmission Date: 20051028
  Serious: Yes (Death, Hospitalization)
  Sender: FDA-Public Use
  Company Number: JP-JNJFOC-20050302284

PATIENT
  Age: 56 Year
  Sex: Male

DRUGS (8)
  1. TAVANIC [Suspect]
     Route: 049
     Dates: start: 20040728, end: 20040921
  2. TAVANIC [Suspect]
     Indication: FEBRILE INFECTION
     Route: 049
     Dates: start: 20040728, end: 20040921
  3. ACETAMINOPHEN [Concomitant]
  4. FLUCONAZOLE [Concomitant]
  5. DIAZEPAM [Concomitant]
  6. PHENHYDAN [Concomitant]
  7. AZULFIDINE [Concomitant]
  8. GENTAMICIN [Concomitant]

REACTIONS (11)
  - CONVULSION [None]
  - DELIRIUM [None]
  - HEPATOCELLULAR DAMAGE [None]
  - MULTI-ORGAN FAILURE [None]
  - PHLEBOTHROMBOSIS [None]
  - PNEUMONIA [None]
  - PSYCHOTIC DISORDER [None]
  - PULMONARY EMBOLISM [None]
  - PULMONARY INFARCTION [None]
  - SEPSIS [None]
  - VISUAL DISTURBANCE [None]
